FAERS Safety Report 6212888-2 (Version None)
Quarter: 2009Q2

REPORT INFORMATION
  Report Type: 
  Country: None (occurrence: None)
  Receive Date: 20090603
  Receipt Date: 20070611
  Transmission Date: 20091009
  Serious: Yes (Hospitalization, Other)
  Sender: FDA-Public Use
  Company Number: US-ASTRAZENECA-2006UW26163

PATIENT
  Age: 37 Year
  Sex: Female
  Weight: 133.4 kg

DRUGS (17)
  1. SEROQUEL [Suspect]
     Indication: MENTAL DISORDER
     Route: 048
     Dates: start: 20000101, end: 20060101
  2. SEROQUEL [Suspect]
     Indication: SLEEP DISORDER
     Route: 048
     Dates: start: 20000101, end: 20060101
  3. SEROQUEL [Suspect]
     Route: 048
     Dates: start: 20040903
  4. SEROQUEL [Suspect]
     Route: 048
     Dates: start: 20040903
  5. METHADONE HCL [Concomitant]
  6. XANAX [Concomitant]
     Route: 048
     Dates: start: 20000608
  7. PROZAC [Concomitant]
     Route: 048
     Dates: start: 20000608
  8. CAPOTEN [Concomitant]
     Route: 048
     Dates: start: 20000608
  9. ZOCOR [Concomitant]
     Route: 048
     Dates: start: 20010715
  10. AMBIEN [Concomitant]
     Route: 048
     Dates: start: 20041027
  11. SONATA [Concomitant]
     Route: 048
     Dates: start: 20041027
  12. LITHIUM [Concomitant]
     Route: 048
     Dates: start: 20041027
  13. EFFEXOR [Concomitant]
     Route: 048
     Dates: start: 20041027
  14. CELEXA [Concomitant]
     Route: 048
     Dates: start: 20041027
  15. METFORMIN HCL [Concomitant]
     Route: 048
     Dates: start: 20051215
  16. SOLU-MEDROL [Concomitant]
     Dates: start: 20030124
  17. RISPERDAL [Concomitant]
     Route: 048
     Dates: start: 20051102

REACTIONS (3)
  - CEREBROVASCULAR ACCIDENT [None]
  - DIABETES MELLITUS [None]
  - DIABETIC NEUROPATHY [None]
